FAERS Safety Report 5099190-X (Version None)
Quarter: 2006Q3

REPORT INFORMATION
  Report Type: 
  Country: None (occurrence: None)
  Receive Date: 20060728
  Receipt Date: 20060331
  Transmission Date: 20061208
  Serious: No
  Sender: FDA-Public Use
  Company Number: COT_0540_2006

PATIENT
  Age: 59 Year
  Sex: Female
  Weight: 81.1939 kg

DRUGS (12)
  1. VENTAVIS [Suspect]
     Indication: PULMONARY HYPERTENSION
     Dosage: 5 MCG 4 - 5X/DAY IH
     Route: 055
     Dates: start: 20051108
  2. PRED FORTE [Concomitant]
  3. WARFARIN SODIUM [Concomitant]
  4. LOTENSIN [Concomitant]
  5. TRACLEER [Concomitant]
  6. FUROSEMIDE [Concomitant]
  7. NEXIUM [Concomitant]
  8. PRAVACHOL [Concomitant]
  9. SILDENAFIL [Concomitant]
  10. SYNTHROID [Concomitant]
  11. FLONASE [Concomitant]
  12. BACTRIM [Concomitant]

REACTIONS (3)
  - DIZZINESS [None]
  - RETINAL DETACHMENT [None]
  - SOMNOLENCE [None]
